FAERS Safety Report 8294434-5 (Version None)
Quarter: 2012Q2

REPORT INFORMATION
  Report Type: 
  Country: None (occurrence: None)
  Receive Date: 20120418
  Receipt Date: 20120410
  Transmission Date: 20120825
  Serious: Yes (Other)
  Sender: FDA-Public Use
  Company Number: AR-GENZYME-POMP-1002083

PATIENT
  Age: 26 Month
  Sex: Male
  Weight: 13.8 kg

DRUGS (1)
  1. MYOZYME [Suspect]
     Indication: GLYCOGEN STORAGE DISEASE TYPE II
     Dosage: 20 MG/KG, Q2W
     Route: 042
     Dates: start: 20100715

REACTIONS (2)
  - FEBRILE CONVULSION [None]
  - PYREXIA [None]
